FAERS Safety Report 17186793 (Version 1)
Quarter: 2019Q4

REPORT INFORMATION
  Report Type: Spontaneous
  Country: FR (occurrence: FR)
  Receive Date: 20191220
  Receipt Date: 20191220
  Transmission Date: 20200122
  Serious: Yes (Life-Threatening, Hospitalization, Other)
  Sender: FDA-Public Use
  Company Number: FR-JNJFOC-20191220343

PATIENT
  Age: 72 Year
  Sex: Male

DRUGS (4)
  1. PHENELZINE [Concomitant]
     Active Substance: PHENELZINE
     Indication: BIPOLAR II DISORDER
     Route: 065
     Dates: start: 201705, end: 201805
  2. HALDOL [Suspect]
     Active Substance: HALOPERIDOL
     Indication: BIPOLAR II DISORDER
     Route: 065
     Dates: start: 201805, end: 201805
  3. LAMOTRIGINE. [Concomitant]
     Active Substance: LAMOTRIGINE
     Indication: BIPOLAR II DISORDER
     Route: 065
     Dates: start: 201705
  4. HALDOL [Suspect]
     Active Substance: HALOPERIDOL
     Indication: COGNITIVE DISORDER

REACTIONS (4)
  - Product use in unapproved indication [Unknown]
  - Dementia with Lewy bodies [Recovered/Resolved]
  - Malignant catatonia [Recovered/Resolved]
  - Off label use [Unknown]

NARRATIVE: CASE EVENT DATE: 2018
